FAERS Safety Report 8951589 (Version 2)
Quarter: 2014Q2

REPORT INFORMATION
  Report Type: Report from Study
  Country: FR (occurrence: FR)
  Receive Date: 20121204
  Receipt Date: 20131018
  Transmission Date: 20141212
  Serious: Yes (Other)
  Sender: FDA-Public Use
  Company Number: FR-PFIZER INC-2012300031

PATIENT
  Age: 57 Year
  Sex: Female
  Weight: 100 kg

DRUGS (6)
  1. ARACYTINE [Suspect]
     Indication: ACUTE MYELOID LEUKAEMIA
     Dosage: 390 MG, 1X/DAY
     Route: 042
     Dates: start: 20081112, end: 20081118
  2. DAUNORUBICIN [Suspect]
     Indication: ACUTE MYELOID LEUKAEMIA
     Dosage: 120 MG, 1X/DAY
     Route: 042
     Dates: start: 20081112, end: 20081119
  3. TAZOCILLINE [Concomitant]
     Dosage: 2 G, 1X/DAY
     Route: 042
     Dates: start: 20081018, end: 20081124
  4. ZOVIRAX [Concomitant]
     Indication: HERPES VIRUS INFECTION
     Dosage: 3 G, 1X/DAY
     Route: 042
     Dates: start: 20081108, end: 20081201
  5. ROCEPHINE [Concomitant]
     Indication: ANTIBIOTIC THERAPY
     Route: 042
  6. TAVANIC [Concomitant]
     Indication: ANTIBIOTIC THERAPY
     Route: 042

REACTIONS (1)
  - Aspergillus infection [Recovered/Resolved]
